FAERS Safety Report 19052874 (Version 1)
Quarter: 2021Q1

REPORT INFORMATION
  Report Type: Spontaneous
  Country: US (occurrence: US)
  Receive Date: 20210324
  Receipt Date: 20210324
  Transmission Date: 20210420
  Serious: No
  Sender: FDA-Public Use
  Company Number: US-TARO-2020TAR01779

PATIENT

DRUGS (6)
  1. VIT D3 2000 UNIT [Concomitant]
     Indication: PRODUCT USED FOR UNKNOWN INDICATION
     Dosage: 2000 UNIT, BID
     Route: 048
  2. LAMICTAL [Concomitant]
     Active Substance: LAMOTRIGINE
     Indication: PRODUCT USED FOR UNKNOWN INDICATION
     Dosage: 1 DOSAGE FORM, DAILY
     Route: 048
  3. LAMOTRIGINE TABLETS 100 MG [Suspect]
     Active Substance: LAMOTRIGINE
     Indication: SEIZURE
     Dosage: UNK
     Route: 065
  4. ONDANSETRON HCL [Concomitant]
     Active Substance: ONDANSETRON HYDROCHLORIDE
     Indication: NAUSEA
     Dosage: 1?2 TABLET THREE TIMES A DAY AS NEEDED
     Route: 048
  5. ATIVAN [Concomitant]
     Active Substance: LORAZEPAM
     Indication: PRODUCT USED FOR UNKNOWN INDICATION
     Dosage: 1 DOSAGE FORM, BID, AS NEEDED
     Route: 048
  6. ZOLOFT [Concomitant]
     Active Substance: SERTRALINE HYDROCHLORIDE
     Indication: PRODUCT USED FOR UNKNOWN INDICATION
     Dosage: 1 DOSAGE FORM, QD, IN THE MORNING
     Route: 048

REACTIONS (9)
  - Recalled product administered [Unknown]
  - Pain [Unknown]
  - Migraine [Unknown]
  - Palpitations [Unknown]
  - Discomfort [Unknown]
  - White blood cell count increased [Unknown]
  - Body mass index increased [Unknown]
  - Product contamination [Unknown]
  - Impaired driving ability [Unknown]

NARRATIVE: CASE EVENT DATE: 20190111
